FAERS Safety Report 5708339-4 (Version None)
Quarter: 2008Q2

REPORT INFORMATION
  Report Type: 
  Country: None (occurrence: None)
  Receive Date: 20080417
  Receipt Date: 20080408
  Transmission Date: 20081010
  Serious: Yes (Other)
  Sender: FDA-Public Use
  Company Number: US-PFIZER INC-2007038747

PATIENT
  Sex: Female
  Weight: 63.5 kg

DRUGS (5)
  1. CHANTIX [Suspect]
     Indication: SMOKING CESSATION THERAPY
     Route: 048
     Dates: start: 20070501, end: 20070501
  2. CHANTIX [Suspect]
     Indication: NICOTINE DEPENDENCE
  3. SYNTHROID [Concomitant]
  4. NEXIUM [Concomitant]
  5. DRUG, UNSPECIFIED [Concomitant]

REACTIONS (9)
  - AGITATION [None]
  - CRYING [None]
  - DELUSION [None]
  - DEPRESSION [None]
  - DISSOCIATION [None]
  - MOOD ALTERED [None]
  - PARANOIA [None]
  - SOCIAL AVOIDANT BEHAVIOUR [None]
  - THINKING ABNORMAL [None]
